FAERS Safety Report 7943938-0 (Version None)
Quarter: 2011Q4

REPORT INFORMATION
  Report Type: 
  Country: None (occurrence: None)
  Receive Date: 20111128
  Receipt Date: 20111118
  Transmission Date: 20120403
  Serious: Yes (Other)
  Sender: FDA-Public Use
  Company Number: CN-ASTRAZENECA-2011SE70320

PATIENT

DRUGS (3)
  1. ATROPINE [Suspect]
     Indication: ANAESTHESIA
     Dosage: 0.5 MG/TIME
     Route: 042
  2. SUCCINYLCHOLINE CHLORIDE [Suspect]
     Indication: ANAESTHESIA
     Dosage: 1 MG/KG
     Route: 042
  3. PROPOFOL [Suspect]
     Indication: ANAESTHESIA
     Dosage: 1.82-2.44 MG/KG
     Route: 042

REACTIONS (1)
  - URINARY INCONTINENCE [None]
